FAERS Safety Report 12528216 (Version 2)
Quarter: 2018Q4

REPORT INFORMATION
  Report Type: Spontaneous
  Country: IT (occurrence: IT)
  Receive Date: 20160705
  Receipt Date: 20181228
  Transmission Date: 20190204
  Serious: Yes (Life-Threatening, Other)
  Sender: FDA-Public Use
  Company Number: IT-PFIZER INC-3240366

PATIENT
  Age: 42 Year
  Sex: Male

DRUGS (8)
  1. BERINERT [Concomitant]
     Active Substance: HUMAN C1-ESTERASE INHIBITOR
     Indication: PREMEDICATION
     Dosage: 1000 IU, WEEKLY, 1000 U BERINERT INHIBITOR C1 IN 100 ML SALINE SOLUTION I.V. EVERY WEEK THROUGHOUT T
     Route: 042
  2. FOLINIC ACID [Suspect]
     Active Substance: LEUCOVORIN
     Dosage: 50% REDUCTION IN THE DOSE OF CHEMOTHERAPY, OXAFAFU SCHEME
     Route: 042
  3. FLUOROURACIL. [Suspect]
     Active Substance: FLUOROURACIL
     Indication: RECTAL CANCER STAGE III
     Dosage: 850 MG/M2, CYCLIC, OXAFAFU SCHEME
     Route: 042
     Dates: start: 201309
  4. OXALIPLATIN. [Suspect]
     Active Substance: OXALIPLATIN
     Indication: RECTAL CANCER STAGE III
     Dosage: 85 MG/M2, CYCLIC, OXAFAFU SCHEME
     Route: 042
     Dates: start: 201309
  5. OXALIPLATIN. [Suspect]
     Active Substance: OXALIPLATIN
     Indication: RECTAL ADENOCARCINOMA
     Dosage: 50% REDUCTION IN THE DOSE OF CHEMOTHERAPY, OXAFAFU SCHEME
     Route: 042
  6. FOLINIC ACID [Suspect]
     Active Substance: LEUCOVORIN
     Indication: RECTAL ADENOCARCINOMA
     Dosage: 250 MG/M2, CYCLIC, OXAFAFU SCHEME
     Route: 042
     Dates: start: 201309
  7. SALINE [SODIUM CHLORIDE] [Concomitant]
     Active Substance: SODIUM CHLORIDE
     Dosage: 100 ML, WEEKLY, 1000 U BERINERT INHIBITOR C1 IN 100 ML SALINE SOLUTION I.V. EVERY WEEK THROUGHOUT TR
     Route: 042
  8. FLUOROURACIL. [Suspect]
     Active Substance: FLUOROURACIL
     Indication: RECTAL ADENOCARCINOMA
     Dosage: 50% REDUCTION IN THE DOSE OF CHEMOTHERAPY, OXAFAFU SCHEME
     Route: 042

REACTIONS (2)
  - Hereditary angioedema [Recovered/Resolved]
  - Neuropathy peripheral [Unknown]

NARRATIVE: CASE EVENT DATE: 2013
